FAERS Safety Report 10256101 (Version 1)
Quarter: 2014Q2

REPORT INFORMATION
  Report Type: Spontaneous
  Country: US (occurrence: US)
  Receive Date: 20140624
  Receipt Date: 20140624
  Transmission Date: 20141212
  Serious: Yes (Other)
  Sender: FDA-Public Use
  Company Number: US-BAXTER-2014BAX032613

PATIENT
  Sex: Female
  Weight: 49.49 kg

DRUGS (2)
  1. DIANEAL LOW CALCIUM [Suspect]
     Indication: PERITONEAL DIALYSIS
     Route: 033
  2. AZITHROMYCIN [Concomitant]
     Indication: BRONCHITIS

REACTIONS (2)
  - Blood pressure abnormal [Unknown]
  - Fluid retention [Unknown]
